FAERS Safety Report 9447834 (Version 1)
Quarter: 2013Q3

REPORT INFORMATION
  Report Type: Spontaneous
  Country: BR (occurrence: BR)
  Receive Date: 20130808
  Receipt Date: 20130808
  Transmission Date: 20140515
  Serious: Yes (Other)
  Sender: FDA-Public Use
  Company Number: BR-AMGEN-BRASP2012083852

PATIENT
  Age: 48 Year
  Sex: Female
  Weight: 69.98 kg

DRUGS (7)
  1. ENBREL [Suspect]
     Indication: RHEUMATOID ARTHRITIS
     Dosage: 50 MG, ONCE WEEKLY
     Route: 058
     Dates: start: 201212, end: 20130608
  2. CAPTOPRIL [Concomitant]
     Indication: HYPERTENSION
     Dosage: 20 MG, QD
     Route: 048
  3. HYDROCHLOROTHIAZIDE [Concomitant]
     Indication: HYPERTENSION
     Dosage: 25 MG, QD
     Route: 048
  4. LOSARTAN [Concomitant]
     Indication: HYPERTENSION
     Dosage: 1 TABLET (50 MG), 2X/DAY
     Route: 048
  5. PARACETAMOL [Concomitant]
     Indication: PAIN
     Dosage: 750 MG, UNK
  6. PREDNISONE [Concomitant]
     Indication: PAIN
     Dosage: 20 MG, UNK
  7. NIMESULIDE [Concomitant]
     Indication: PAIN
     Dosage: UNK

REACTIONS (16)
  - Wrong technique in drug usage process [Unknown]
  - Malaise [Recovered/Resolved]
  - Retching [Unknown]
  - Renal pain [Recovered/Resolved]
  - Abdominal distension [Unknown]
  - Rheumatoid arthritis [Not Recovered/Not Resolved]
  - Dry mouth [Recovered/Resolved]
  - Tongue dry [Recovered/Resolved]
  - Chills [Recovered/Resolved]
  - Abdominal pain [Recovered/Resolved]
  - Pain in extremity [Not Recovered/Not Resolved]
  - Foot deformity [Not Recovered/Not Resolved]
  - Limb discomfort [Not Recovered/Not Resolved]
  - Arthralgia [Not Recovered/Not Resolved]
  - Paraesthesia [Unknown]
  - Chest pain [Unknown]
